FAERS Safety Report 4283594-9 (Version None)
Quarter: 2004Q1

REPORT INFORMATION
  Report Type: 
  Country: None (occurrence: None)
  Receive Date: 20040202
  Receipt Date: 20040122
  Transmission Date: 20041129
  Serious: Yes (Death)
  Sender: FDA-Public Use
  Company Number: GB-GLAXOSMITHKLINE-B0320609A

PATIENT
  Age: 55 Year
  Sex: Female
  Weight: 58.06 kg

DRUGS (2)
  1. ZYBAN [Suspect]
     Indication: EX-SMOKER
     Route: 048
     Dates: start: 20000905, end: 20001003
  2. FLUOXETINE HYDROCHLORIDE [Concomitant]
     Route: 065
     Dates: start: 20000718

REACTIONS (1)
  - ASTROCYTOMA [None]
